FAERS Safety Report 24799106 (Version 2)
Quarter: 2025Q1

REPORT INFORMATION
  Report Type: Spontaneous
  Country: JP (occurrence: JP)
  Receive Date: 20250102
  Receipt Date: 20250110
  Transmission Date: 20250409
  Serious: No
  Sender: MERCK
  Company Number: JP-MSD-M2024-56167

PATIENT
  Age: 8 Decade
  Sex: Female

DRUGS (1)
  1. LAGEVRIO [Suspect]
     Active Substance: MOLNUPIRAVIR
     Indication: COVID-19 treatment
     Dosage: 400 MILLIGRAM, BID
     Route: 048
     Dates: start: 20241223, end: 20241227

REACTIONS (2)
  - Drug ineffective [Unknown]
  - Accidental underdose [Unknown]

NARRATIVE: CASE EVENT DATE: 20241223
